FAERS Safety Report 13117188 (Version 2)
Quarter: 2017Q3

REPORT INFORMATION
  Report Type: Spontaneous
  Country: IT (occurrence: IT)
  Receive Date: 20170116
  Receipt Date: 20170808
  Transmission Date: 20171127
  Serious: Yes (Death, Life-Threatening, Hospitalization, Disabling, Other)
  Sender: FDA-Public Use
  Company Number: IT-JNJFOC-20170109965

PATIENT

DRUGS (4)
  1. CETIRIZINE [Suspect]
     Active Substance: CETIRIZINE HYDROCHLORIDE
     Indication: PRODUCT USED FOR UNKNOWN INDICATION
     Route: 065
  2. CETIRIZINE [Suspect]
     Active Substance: CETIRIZINE HYDROCHLORIDE
     Route: 065
  3. PROMETHAZINE [Suspect]
     Active Substance: PROMETHAZINE\PROMETHAZINE HYDROCHLORIDE
     Indication: PRODUCT USED FOR UNKNOWN INDICATION
     Route: 065
  4. DIPHENHYDRAMINE. [Suspect]
     Active Substance: DIPHENHYDRAMINE
     Indication: PRODUCT USED FOR UNKNOWN INDICATION
     Route: 065

REACTIONS (20)
  - Death [Fatal]
  - Cardiac arrest [Fatal]
  - Cardio-respiratory arrest [Fatal]
  - Unresponsive to stimuli [Fatal]
  - Intentional overdose [Fatal]
  - Loss of consciousness [Fatal]
  - Brain oedema [Fatal]
  - Sudden infant death syndrome [Fatal]
  - Wrong drug administered [Fatal]
  - Respiratory arrest [Fatal]
  - Intentional product misuse [Fatal]
  - Accidental overdose [Fatal]
  - Medication error [Fatal]
  - Hypoxic-ischaemic encephalopathy [Fatal]
  - Overdose [Fatal]
  - Completed suicide [Fatal]
  - Victim of homicide [Fatal]
  - Coma [Fatal]
  - Vomiting [Fatal]
  - Seizure [Fatal]
